FAERS Safety Report 4450391-0 (Version None)
Quarter: 2004Q3

REPORT INFORMATION
  Report Type: 
  Country: None (occurrence: None)
  Receive Date: 20040915
  Receipt Date: 20040910
  Transmission Date: 20050211
  Serious: Yes (Hospitalization)
  Sender: FDA-Public Use
  Company Number: CH-MERCK-0409CHE00019

PATIENT
  Age: 59 Year
  Sex: Male

DRUGS (8)
  1. ALFUZOSIN HYDROCHLORIDE [Concomitant]
     Route: 048
  2. ASCORBIC ACID AND VITAMIN B (UNSPECIFIED) [Concomitant]
     Route: 048
  3. CHONDROITIN SULFATE SODIUM [Concomitant]
     Route: 048
  4. CLORAZEPATE DIPOTASSIUM [Concomitant]
     Route: 048
  5. VASOTEC [Concomitant]
     Route: 048
  6. VASERETIC [Concomitant]
     Route: 048
  7. VIOXX [Suspect]
     Route: 048
     Dates: start: 20030101, end: 20040814
  8. SERTRALINE HYDROCHLORIDE [Concomitant]
     Route: 048

REACTIONS (5)
  - COLITIS [None]
  - COLITIS ISCHAEMIC [None]
  - GASTRITIS [None]
  - PROCTOCOLITIS [None]
  - RECTAL HAEMORRHAGE [None]
